FAERS Safety Report 5585870-6 (Version None)
Quarter: 2007Q4

REPORT INFORMATION
  Report Type: 
  Country: None (occurrence: None)
  Receive Date: 20071205
  Receipt Date: 20061030
  Transmission Date: 20080405
  Serious: Yes (Other)
  Sender: FDA-Public Use
  Company Number: HQWYE486406NOV06

PATIENT
  Age: 34 Year
  Sex: Female
  Weight: 88.53 kg

DRUGS (3)
  1. EFFEXOR XR [Suspect]
     Indication: DEPRESSION
     Dosage: 150 MG 1X PER 1 DAY, ORAL ; 225 MG 1X PER 1 DAY, ORAL
     Route: 048
     Dates: start: 20060401, end: 20061001
  2. EFFEXOR XR [Suspect]
     Indication: DEPRESSION
     Dosage: 150 MG 1X PER 1 DAY, ORAL ; 225 MG 1X PER 1 DAY, ORAL
     Route: 048
     Dates: start: 20061001
  3. ATIVAN [Concomitant]

REACTIONS (1)
  - BLOOD PRESSURE INCREASED [None]
